FAERS Safety Report 5286201-1 (Version None)
Quarter: 2007Q2

REPORT INFORMATION
  Report Type: 
  Country: None (occurrence: None)
  Receive Date: 20070403
  Receipt Date: 20070403
  Transmission Date: 20071010
  Serious: Yes (Hospitalization)
  Sender: FDA-Public Use
  Company Number: None

PATIENT
  Age: 75 Year
  Sex: Male
  Weight: 81 kg

DRUGS (2)
  1. DEXAMETHASONE [Suspect]
     Dosage: 5ML INJ DAILY IM
     Route: 030
  2. WARFARIN SODIUM [Suspect]
     Dosage: 5MG DAILY PO
     Route: 048

REACTIONS (13)
  - ANAEMIA [None]
  - ATRIAL FIBRILLATION [None]
  - CARDIAC FAILURE CONGESTIVE [None]
  - CONVULSION [None]
  - DUODENITIS [None]
  - DYSPNOEA [None]
  - EPILEPSY [None]
  - GASTRIC ULCER [None]
  - GASTROINTESTINAL HAEMORRHAGE [None]
  - HIATUS HERNIA [None]
  - MALLORY-WEISS SYNDROME [None]
  - PAIN IN EXTREMITY [None]
  - PULMONARY EMBOLISM [None]
